FAERS Safety Report 6242529-X (Version None)
Quarter: 2009Q2

REPORT INFORMATION
  Report Type: 
  Country: None (occurrence: None)
  Receive Date: 20090624
  Receipt Date: 20090616
  Transmission Date: 20091009
  Serious: No
  Sender: FDA-Public Use
  Company Number: BR-ROCHE-633186

PATIENT
  Age: 90 Year
  Sex: Female
  Weight: 57.8 kg

DRUGS (2)
  1. IBANDRONIC ACID [Suspect]
     Indication: DRUG USE FOR UNKNOWN INDICATION
     Route: 048
     Dates: start: 20081001, end: 20081101
  2. ARIMIDEX [Suspect]
     Route: 065
     Dates: start: 20090101

REACTIONS (1)
  - FLUSHING [None]
